FAERS Safety Report 19659606 (Version 1)
Quarter: 2021Q3

REPORT INFORMATION
  Report Type: Spontaneous
  Country: CN (occurrence: CN)
  Receive Date: 20210804
  Receipt Date: 20210804
  Transmission Date: 20211014
  Serious: Yes (Other)
  Sender: FDA-Public Use
  Company Number: CN-BAXTER-2021BAX023847

PATIENT
  Age: 1 Year
  Sex: Male
  Weight: 15.5 kg

DRUGS (5)
  1. MERCAPTOPURINE. [Suspect]
     Active Substance: MERCAPTOPURINE
     Indication: ACUTE LYMPHOCYTIC LEUKAEMIA
     Dosage: TABLET
     Route: 048
     Dates: start: 20191104, end: 20191106
  2. ENDOXAN [Suspect]
     Active Substance: CYCLOPHOSPHAMIDE
     Indication: ACUTE LYMPHOCYTIC LEUKAEMIA
     Dosage: CYCLOPHOSPHAMIDE POWDER FOR INJECTION 0.64G  + (4:1) GLUCOSE AND SODIUM CHLORIDE INJECTION 250ML, D1
     Route: 041
     Dates: start: 20191104, end: 20191104
  3. CYTOSAR [Suspect]
     Active Substance: CYTARABINE
     Indication: ACUTE LYMPHOCYTIC LEUKAEMIA
     Dosage: CYTOSAR POWDER FOR INJECTION 0.64G + (4:1) GLUCOSE AND SODIUM CHLORIDE INJECTION 250ML, Q12H, D1?3;
     Route: 041
     Dates: start: 20191104, end: 20191106
  4. 5% GLUCOSE AND 0.9% SODIUM CHLORIDE INJECTION [Suspect]
     Active Substance: DEXTROSE\SODIUM CHLORIDE
     Indication: MEDICATION DILUTION
     Dosage: CYCLOPHOSPHAMIDE POWDER FOR INJECTION 0.64G  + (4:1) GLUCOSE AND SODIUM CHLORIDE INJECTION 250ML, D1
     Route: 041
     Dates: start: 20191104, end: 20191104
  5. 5% GLUCOSE AND 0.9% SODIUM CHLORIDE INJECTION [Suspect]
     Active Substance: DEXTROSE\SODIUM CHLORIDE
     Dosage: CYTOSAR POWDER FOR INJECTION 0.64G + (4:1) GLUCOSE AND SODIUM CHLORIDE INJECTION 250ML, Q12H, D1?3;
     Route: 041
     Dates: start: 20191104, end: 20191106

REACTIONS (1)
  - Myelosuppression [Recovering/Resolving]

NARRATIVE: CASE EVENT DATE: 20191111
